FAERS Safety Report 9332548 (Version 2)
Quarter: 2013Q3

REPORT INFORMATION
  Report Type: Spontaneous
  Country: FR (occurrence: None)
  Receive Date: 20130603
  Receipt Date: 20130722
  Transmission Date: 20140515
  Serious: Yes (Hospitalization)
  Sender: FDA-Public Use
  Company Number: SYM-2013-04205

PATIENT
  Age: 84 Year
  Sex: Female

DRUGS (6)
  1. FLAGYL [Suspect]
     Indication: GASTRODUODENAL ULCER
     Route: 048
     Dates: start: 20130215, end: 20130220
  2. CLAMOXYL (AMOXICILLIN) [Suspect]
     Indication: GASTRODUODENAL ULCER
     Route: 048
     Dates: start: 20130209, end: 20130214
  3. ZECLAR [Suspect]
     Indication: GASTRODUODENAL ULCER
     Route: 048
     Dates: start: 20130215, end: 20130220
  4. STAGID (METFORMIN EMBONATE) (METFORMIN EMBONATE) [Concomitant]
  5. UMULINE (INSULIN HUMAN ZINC SUSPENSION) (INSULIN HUMAN ZINC SUSPENSION) [Concomitant]
  6. LANTUS (INSULIN GLARGINE) (INSULIN GLARGINE) [Concomitant]

REACTIONS (10)
  - Hepatitis [None]
  - Bradycardia [None]
  - Weight decreased [None]
  - Biliary cyst [None]
  - Cardiac failure [None]
  - Bronchopneumonia [None]
  - Embolism [None]
  - Respiratory distress [None]
  - Pancreatic enlargement [None]
  - Lung infection [None]
